FAERS Safety Report 4602040-6 (Version None)
Quarter: 2005Q2

REPORT INFORMATION
  Report Type: 
  Country: None (occurrence: None)
  Receive Date: 20050214
  Receipt Date: 20041028
  Transmission Date: 20051028
  Serious: Yes (Other)
  Sender: FDA-Public Use
  Company Number: 8007974

PATIENT
  Age: 51 Year
  Sex: Male
  Weight: 79.54 kg

DRUGS (5)
  1. KEPPRA [Suspect]
     Indication: EPILEPSY
     Dosage: 500 MG/D PO
     Route: 048
     Dates: start: 20040901
  2. LANOXIN [Concomitant]
  3. GLUCOPHAGE [Concomitant]
  4. FLOMAX [Concomitant]
  5. PLAVIX [Concomitant]

REACTIONS (12)
  - ANXIETY [None]
  - CHRONIC SINUSITIS [None]
  - DRY THROAT [None]
  - DYSPHAGIA [None]
  - DYSPNOEA [None]
  - FATIGUE [None]
  - FUNGAL INFECTION [None]
  - LYMPHADENOPATHY [None]
  - RASH [None]
  - RHINITIS [None]
  - SUICIDAL IDEATION [None]
  - VISUAL DISTURBANCE [None]
